FAERS Safety Report 11241684 (Version 3)
Quarter: 2015Q3

REPORT INFORMATION
  Report Type: Spontaneous
  Country: HK (occurrence: HK)
  Receive Date: 20150706
  Receipt Date: 20150729
  Transmission Date: 20151125
  Serious: Yes (Hospitalization, Other)
  Sender: FDA-Public Use
  Company Number: HK-SA-2015SA093757

PATIENT
  Age: 36 Year
  Sex: Female

DRUGS (14)
  1. TAXOTERE [Suspect]
     Active Substance: DOCETAXEL
     Indication: NASOPHARYNGEAL CANCER
     Dosage: 80MG:4F121A AND 20MG:4F123A
     Route: 042
     Dates: start: 20150617, end: 20150622
  2. 5-FU [Suspect]
     Active Substance: FLUOROURACIL
     Indication: NASOPHARYNGEAL CANCER
     Route: 042
     Dates: start: 20150618, end: 20150622
  3. OLOPATADINE [Concomitant]
     Active Substance: OLOPATADINE
     Indication: PROPHYLAXIS
     Dosage: 0.2 %
     Route: 061
     Dates: start: 20150430
  4. GENTEAL MILD [Concomitant]
     Active Substance: HYPROMELLOSE 2910 (4000 MPA.S)
     Indication: DRY EYE
     Route: 061
     Dates: start: 20150430
  5. CALCIUM CARBONATE. [Concomitant]
     Active Substance: CALCIUM CARBONATE
     Indication: SUPPLEMENTATION THERAPY
     Route: 048
     Dates: start: 20141107
  6. APREPITANT. [Concomitant]
     Active Substance: APREPITANT
     Indication: PROPHYLAXIS
     Dosage: 125 MG ON 17JUN2015?80 MG ON 17JUN2015 AND 18JUN2015
     Route: 048
     Dates: start: 20150617, end: 20150619
  7. MORPHINE SULFATE. [Concomitant]
     Active Substance: MORPHINE SULFATE
     Indication: PAIN MANAGEMENT
     Dosage: SR TABLET
     Route: 048
     Dates: start: 20150615
  8. HYPROMELLOSE [Concomitant]
     Active Substance: HYPROMELLOSES
     Indication: DRY EYE
     Route: 061
     Dates: start: 20150616
  9. CISPLATIN. [Suspect]
     Active Substance: CISPLATIN
     Indication: NASOPHARYNGEAL CANCER
     Route: 042
     Dates: start: 20150617, end: 20150622
  10. GRANULOCYTE COLONY STIMULATING FACTOR [Concomitant]
     Active Substance: GRANULOCYTE COLONY-STIMULATING FACTOR NOS
     Dates: start: 20150622
  11. TAXOTERE [Suspect]
     Active Substance: DOCETAXEL
     Indication: NASOPHARYNGEAL CANCER
     Dosage: 80MG:4F121A AND 20MG:4F123A
     Route: 042
     Dates: start: 20150617, end: 20150622
  12. FAMOTIDINE. [Concomitant]
     Active Substance: FAMOTIDINE
     Indication: PROPHYLAXIS
     Route: 048
     Dates: start: 20141107
  13. DEXAMETHASONE. [Concomitant]
     Active Substance: DEXAMETHASONE
     Indication: PREMEDICATION
     Route: 048
     Dates: start: 20150616, end: 20150618
  14. SENNA [Concomitant]
     Active Substance: SENNA LEAF\SENNOSIDES\SENNOSIDES A AND B
     Indication: CONSTIPATION PROPHYLAXIS
     Dosage: AT NIGHT
     Route: 048
     Dates: start: 20150615, end: 20150620

REACTIONS (5)
  - Pyrexia [Recovered/Resolved]
  - Mucosal inflammation [Unknown]
  - Neutrophil count increased [Recovered/Resolved]
  - Abdominal pain [Unknown]
  - Febrile neutropenia [Unknown]

NARRATIVE: CASE EVENT DATE: 201506
